FAERS Safety Report 9153574 (Version 1)
Quarter: 2013Q1

REPORT INFORMATION
  Report Type: Spontaneous
  Country: US (occurrence: None)
  Receive Date: 20130306
  Receipt Date: 20130306
  Transmission Date: 20140127
  Serious: No
  Sender: FDA-Public Use
  Company Number: None

PATIENT
  Sex: 0

DRUGS (1)
  1. LAMOTIRIGENE [Suspect]
     Indication: CONVULSION
     Route: 048
     Dates: start: 20130206

REACTIONS (1)
  - Grand mal convulsion [None]
